FAERS Safety Report 4543624-3 (Version None)
Quarter: 2005Q1

REPORT INFORMATION
  Report Type: 
  Country: None (occurrence: None)
  Receive Date: 20050103
  Receipt Date: 20041223
  Transmission Date: 20050727
  Serious: Yes (Congenital Anomaly)
  Sender: FDA-Public Use
  Company Number: DK-GLAXOSMITHKLINE-B0363029A

PATIENT

DRUGS (2)
  1. SEROXAT [Suspect]
     Indication: ILL-DEFINED DISORDER
     Dosage: 20MG TWICE PER DAY
  2. METOPROLOL SUCCINATE [Concomitant]
     Indication: ILL-DEFINED DISORDER
     Dosage: 50MG UNKNOWN

REACTIONS (3)
  - DRUG EXPOSURE DURING PREGNANCY [None]
  - KIDNEY MALFORMATION [None]
  - URINARY TRACT MALFORMATION [None]
